FAERS Safety Report 21518745 (Version 1)
Quarter: 2022Q4

REPORT INFORMATION
  Report Type: Spontaneous
  Country: US (occurrence: None)
  Receive Date: 20221027
  Receipt Date: 20221027
  Transmission Date: 20230112
  Serious: Yes (Death)
  Sender: FDA-Public Use
  Company Number: None

PATIENT
  Sex: Male

DRUGS (13)
  1. GAMMAGARD LIQUID [Suspect]
     Active Substance: HUMAN IMMUNOGLOBULIN G
     Indication: Hypogammaglobulinaemia
     Dosage: 30 GM/300ML INJECTION??INFUSE 30 GRAMS (300 ML) INTRAVENOUSLY EVERY 4 WEEKS
     Route: 042
     Dates: start: 20210817, end: 20220101
  2. AMLODIPINE TAB [Concomitant]
  3. ASPIRIN TAB [Concomitant]
  4. BENADRYL ALG TAB [Concomitant]
  5. DEXAMETHASONE [Concomitant]
     Active Substance: DEXAMETHASONE
  6. GABAPENTIN [Concomitant]
     Active Substance: GABAPENTIN
  7. MAG OXIDE TAB [Concomitant]
  8. MIDODRINE TAB [Concomitant]
  9. OMEPRAZOLE TAB [Concomitant]
  10. OXYCODONE TAB [Concomitant]
  11. POTASSIUM POW CITRATE [Concomitant]
  12. PRAVASTATIN [Concomitant]
     Active Substance: PRAVASTATIN
  13. SODIUM BICAR TAB [Concomitant]

REACTIONS (1)
  - Death [None]

NARRATIVE: CASE EVENT DATE: 20220101
